FAERS Safety Report 7725565-3 (Version None)
Quarter: 2011Q3

REPORT INFORMATION
  Report Type: 
  Country: None (occurrence: None)
  Receive Date: 20110902
  Receipt Date: 20110823
  Transmission Date: 20111222
  Serious: Yes (Death)
  Sender: FDA-Public Use
  Company Number: FR-JNJFOC-20110812292

PATIENT

DRUGS (22)
  1. DOXORUBICIN HYDROCHLORIDE [Suspect]
     Route: 042
  2. DOXORUBICIN HYDROCHLORIDE [Suspect]
     Route: 042
  3. RITUXIMAB [Suspect]
     Indication: DIFFUSE LARGE B-CELL LYMPHOMA
     Route: 042
  4. CYCLOPHOSPHAMIDE [Suspect]
     Route: 042
  5. BLEOMYCIN SULFATE [Suspect]
     Indication: DIFFUSE LARGE B-CELL LYMPHOMA
     Route: 042
  6. DOXORUBICIN HYDROCHLORIDE [Suspect]
     Indication: DIFFUSE LARGE B-CELL LYMPHOMA
     Route: 042
  7. BLEOMYCIN SULFATE [Suspect]
     Route: 042
  8. DOXORUBICIN HYDROCHLORIDE [Suspect]
     Route: 042
  9. RITUXIMAB [Suspect]
     Route: 042
  10. CYCLOPHOSPHAMIDE [Suspect]
     Route: 042
  11. RITUXIMAB [Suspect]
     Route: 042
  12. RITUXIMAB [Suspect]
     Route: 042
  13. CYCLOPHOSPHAMIDE [Suspect]
     Indication: DIFFUSE LARGE B-CELL LYMPHOMA
     Route: 042
  14. CYCLOPHOSPHAMIDE [Suspect]
     Route: 042
  15. BLEOMYCIN SULFATE [Suspect]
     Route: 042
  16. NEUPOGEN [Concomitant]
     Indication: DIFFUSE LARGE B-CELL LYMPHOMA
     Route: 065
  17. COTRIM [Concomitant]
     Indication: PROPHYLAXIS
     Route: 065
  18. PREDNISONE [Suspect]
     Indication: DIFFUSE LARGE B-CELL LYMPHOMA
     Route: 048
  19. ACYCLOVIR [Concomitant]
     Indication: PROPHYLAXIS
     Route: 065
  20. VINDESINE [Suspect]
     Indication: DIFFUSE LARGE B-CELL LYMPHOMA
     Route: 065
  21. BLEOMYCIN SULFATE [Suspect]
     Route: 042
  22. METHOTREXATE [Suspect]
     Indication: DIFFUSE LARGE B-CELL LYMPHOMA
     Route: 037

REACTIONS (1)
  - HAEMORRHAGE [None]
